FAERS Safety Report 19567077 (Version 1)
Quarter: 2021Q3

REPORT INFORMATION
  Report Type: Spontaneous
  Country: IT (occurrence: IT)
  Receive Date: 20210716
  Receipt Date: 20210716
  Transmission Date: 20211014
  Serious: Yes (Other)
  Sender: FDA-Public Use
  Company Number: IT-ENDO PHARMACEUTICALS INC-2021-010189

PATIENT
  Age: 67 Year
  Sex: Male

DRUGS (3)
  1. AMOXICILLIN. [Suspect]
     Active Substance: AMOXICILLIN
     Indication: BRONCHITIS
     Dosage: 1 G, BID, FOR 5 DAYS
     Route: 048
  2. LOW?DOSE STEROIDS [Concomitant]
     Indication: MYASTHENIA GRAVIS
  3. PYRIDOSTIGMINE [Concomitant]
     Active Substance: PYRIDOSTIGMINE
     Indication: MYASTHENIA GRAVIS

REACTIONS (1)
  - Myasthenia gravis [Recovered/Resolved]
